FAERS Safety Report 23698342 (Version 1)
Quarter: 2024Q2

REPORT INFORMATION
  Report Type: Spontaneous
  Country: US (occurrence: None)
  Receive Date: 20240402
  Receipt Date: 20240402
  Transmission Date: 20240716
  Serious: No
  Sender: FDA-Public Use
  Company Number: None

PATIENT
  Age: 60 Year
  Sex: 0

DRUGS (2)
  1. DUPILUMAB [Suspect]
     Active Substance: DUPILUMAB
     Indication: Dermatitis atopic
     Dosage: OTHER FREQUENCY : EVERY 2 WEEKS;?
     Route: 058
     Dates: start: 20240319
  2. DUPILUMAB [Concomitant]
     Active Substance: DUPILUMAB
     Dates: start: 20240319, end: 20240319

REACTIONS (9)
  - Dermatitis atopic [None]
  - Overdose [None]
  - White blood cell count increased [None]
  - Eosinophil count increased [None]
  - Neutrophil count increased [None]
  - Hyponatraemia [None]
  - Atrial fibrillation [None]
  - Troponin increased [None]
  - Unresponsive to stimuli [None]
